FAERS Safety Report 6856186-2 (Version None)
Quarter: 2010Q3

REPORT INFORMATION
  Report Type: 
  Country: None (occurrence: None)
  Receive Date: 20100719
  Receipt Date: 20100712
  Transmission Date: 20110219
  Serious: Yes (Hospitalization)
  Sender: FDA-Public Use
  Company Number: FR-SANOFI-AVENTIS-2010SA040245

PATIENT
  Age: 84 Year
  Sex: Female

DRUGS (5)
  1. DIAMOX SRC [Suspect]
     Indication: RETINAL DETACHMENT
     Route: 048
     Dates: start: 20090901, end: 20090922
  2. LASIX [Suspect]
     Route: 048
     Dates: end: 20090923
  3. ECAZIDE [Suspect]
     Route: 048
     Dates: end: 20090923
  4. PREVISCAN [Suspect]
     Route: 048
  5. CORDARONE [Concomitant]
     Route: 048

REACTIONS (4)
  - FALL [None]
  - HYPONATRAEMIA [None]
  - HYPOTENSION [None]
  - RENAL FAILURE ACUTE [None]
